FAERS Safety Report 5641098-2 (Version None)
Quarter: 2008Q1

REPORT INFORMATION
  Report Type: 
  Country: None (occurrence: None)
  Receive Date: 20080227
  Receipt Date: 20070321
  Transmission Date: 20080703
  Serious: No
  Sender: FDA-Public Use
  Company Number: A0615206A

PATIENT
  Age: 30 Year
  Sex: Female

DRUGS (1)
  1. NICORETTE [Suspect]
     Dates: start: 20060804

REACTIONS (4)
  - CHEST PAIN [None]
  - HEADACHE [None]
  - PARAESTHESIA ORAL [None]
  - SALIVARY HYPERSECRETION [None]
